FAERS Safety Report 4801514-2 (Version None)
Quarter: 2005Q4

REPORT INFORMATION
  Report Type: 
  Country: None (occurrence: None)
  Receive Date: 20051018
  Receipt Date: 20051010
  Transmission Date: 20060501
  Serious: Yes (Other)
  Sender: FDA-Public Use
  Company Number: 200513325FR

PATIENT
  Age: 67 Year
  Sex: Male

DRUGS (1)
  1. BIRODOGYL [Suspect]
     Indication: TOOTH INFECTION
     Route: 048
     Dates: start: 20051001, end: 20051001

REACTIONS (1)
  - HALLUCINATION [None]
